FAERS Safety Report 15374061 (Version 1)
Quarter: 2018Q3

REPORT INFORMATION
  Report Type: Report from Study
  Country: US (occurrence: US)
  Receive Date: 20180912
  Receipt Date: 20180912
  Transmission Date: 20181010
  Serious: Yes (Other)
  Sender: FDA-Public Use
  Company Number: US-UCBSA-2018038355

PATIENT
  Sex: Male

DRUGS (2)
  1. LEVETIRACETAM. [Suspect]
     Active Substance: LEVETIRACETAM
     Indication: PRODUCT USED FOR UNKNOWN INDICATION
     Dosage: 2 ML, 2X/DAY (BID) (400 MG A DAY)
  2. ZONEGRAN [Concomitant]
     Active Substance: ZONISAMIDE
     Indication: PRODUCT USED FOR UNKNOWN INDICATION
     Dosage: UNK

REACTIONS (6)
  - Seizure [Unknown]
  - Abnormal behaviour [Unknown]
  - Epilepsy [Unknown]
  - Myoclonic epilepsy [Unknown]
  - Anger [Unknown]
  - Atonic seizures [Unknown]
